FAERS Safety Report 21878585 (Version 1)
Quarter: 2023Q1

REPORT INFORMATION
  Report Type: Spontaneous
  Country: US (occurrence: US)
  Receive Date: 20230118
  Receipt Date: 20230118
  Transmission Date: 20230418
  Serious: Yes (Other)
  Sender: FDA-Public Use
  Company Number: US-GLAXOSMITHKLINE-US2023AMR004543

PATIENT

DRUGS (1)
  1. BENLYSTA [Suspect]
     Active Substance: BELIMUMAB
     Indication: Lupus nephritis
     Dosage: UNK
     Dates: start: 201201

REACTIONS (14)
  - Paralysis [Unknown]
  - COVID-19 [Unknown]
  - Nasal congestion [Unknown]
  - Throat irritation [Unknown]
  - Pain [Unknown]
  - Aphasia [Unknown]
  - Crying [Unknown]
  - Dyspnoea [Unknown]
  - Chest discomfort [Unknown]
  - Bedridden [Unknown]
  - Arthralgia [Unknown]
  - Gait inability [Unknown]
  - Decreased activity [Unknown]
  - Depression [Unknown]

NARRATIVE: CASE EVENT DATE: 20221101
